FAERS Safety Report 8528407-1 (Version None)
Quarter: 2012Q3

REPORT INFORMATION
  Report Type: 
  Country: None (occurrence: None)
  Receive Date: 20120722
  Receipt Date: 20120713
  Transmission Date: 20120928
  Serious: Yes (Hospitalization)
  Sender: FDA-Public Use
  Company Number: PHHY2012GB060438

PATIENT
  Sex: Female

DRUGS (13)
  1. LORAZEPAM [Concomitant]
     Dosage: 1 MG, TID
  2. MIRTAZAPINE [Concomitant]
  3. ATORVASTATIN [Concomitant]
  4. METOCLOPRAMIDE [Suspect]
  5. ACRIVASTINE [Concomitant]
  6. RAMIPRIL [Concomitant]
  7. TETRABENAZINE [Suspect]
     Dosage: 4.5 MG, UNK
  8. FENOFIBRATE [Concomitant]
  9. BECONASE [Concomitant]
  10. BENDROFLUMETHIAZIDE [Concomitant]
  11. PROPRANOLOL [Concomitant]
     Dosage: 10 MG
  12. OMEPRAZOLE [Concomitant]
  13. PAROXETINE HYDROCHLORIDE [Suspect]
     Indication: DEPRESSION
     Dosage: 20 MG, BID
     Route: 048
     Dates: start: 20111101

REACTIONS (5)
  - AKATHISIA [None]
  - HALLUCINATION [None]
  - FALL [None]
  - EATING DISORDER [None]
  - MUSCLE CONTRACTIONS INVOLUNTARY [None]
